FAERS Safety Report 13165051 (Version 2)
Quarter: 2017Q1

REPORT INFORMATION
  Report Type: Spontaneous
  Country: US (occurrence: US)
  Receive Date: 20170130
  Receipt Date: 20170203
  Transmission Date: 20170428
  Serious: Yes (Hospitalization, Other)
  Sender: FDA-Public Use
  Company Number: US-AMGEN-USASP2017012599

PATIENT
  Age: 69 Year
  Sex: Female

DRUGS (1)
  1. ENBREL [Suspect]
     Active Substance: ETANERCEPT
     Indication: PSORIATIC ARTHROPATHY
     Dosage: 50 MG, QWK
     Route: 058

REACTIONS (9)
  - Unevaluable event [Unknown]
  - Blood pressure increased [Recovered/Resolved]
  - Head discomfort [Recovering/Resolving]
  - Memory impairment [Unknown]
  - Wrong technique in product usage process [Unknown]
  - Visual impairment [Unknown]
  - Abasia [Unknown]
  - Musculoskeletal stiffness [Recovering/Resolving]
  - Fear [Unknown]

NARRATIVE: CASE EVENT DATE: 201701
